FAERS Safety Report 19614851 (Version 1)
Quarter: 2021Q3

REPORT INFORMATION
  Report Type: Report from Study
  Country: ES (occurrence: ES)
  Receive Date: 20210727
  Receipt Date: 20210727
  Transmission Date: 20211014
  Serious: Yes (Other)
  Sender: FDA-Public Use
  Company Number: ES-MYLANLABS-2021M1044831

PATIENT
  Age: 71 Year
  Sex: Male
  Weight: 79.4 kg

DRUGS (11)
  1. 5 FU [Suspect]
     Active Substance: FLUOROURACIL
     Indication: COLORECTAL CANCER
     Dosage: 4700 MILLIGRAM, BIWEEKLY
     Route: 042
  2. PANITUMUMAB [Suspect]
     Active Substance: PANITUMUMAB
     Dosage: 510 MILLIGRAM, BIWEEKLY
     Route: 042
     Dates: start: 20200803
  3. 5 FU [Suspect]
     Active Substance: FLUOROURACIL
     Dosage: 4600 MILLIGRAM, BIWEEKLY
     Route: 042
     Dates: start: 20190424, end: 20200708
  4. 5 FU [Suspect]
     Active Substance: FLUOROURACIL
     Dosage: 3600 MILLIGRAM, BIWEEKLY
     Route: 042
     Dates: start: 20190424, end: 20200708
  5. PANITUMUMAB [Suspect]
     Active Substance: PANITUMUMAB
     Indication: COLORECTAL CANCER
     Dosage: 480 MILLIGRAM, Q2WK
     Route: 042
     Dates: start: 20190905
  6. FOLINIC ACID [Concomitant]
     Active Substance: LEUCOVORIN
     Indication: COLORECTAL CANCER
     Dosage: 780 MILLIGRAM, BIWEEKLY
     Route: 042
  7. OXALIPLATIN. [Suspect]
     Active Substance: OXALIPLATIN
     Indication: COLORECTAL CANCER
     Dosage: 170 MILLIGRAM, Q2WK
     Route: 042
  8. OXALIPLATIN. [Suspect]
     Active Substance: OXALIPLATIN
     Dosage: 160 MILLIGRAM, BIWEEKLY
     Route: 042
     Dates: start: 20190424, end: 20200708
  9. 5 FU [Suspect]
     Active Substance: FLUOROURACIL
     Dosage: 780 MILLIGRAM, BIWEEKLY
     Route: 042
  10. PANITUMUMAB [Suspect]
     Active Substance: PANITUMUMAB
     Dosage: 510 MILLIGRAM, BIWEEKLY
     Route: 042
     Dates: start: 20190424, end: 20200708
  11. FOLINIC ACID [Concomitant]
     Active Substance: LEUCOVORIN
     Dosage: 750 MILLIGRAM, BIWEEKLY
     Route: 042
     Dates: start: 20190424, end: 20200708

REACTIONS (4)
  - Mucosal inflammation [Recovered/Resolved]
  - Paronychia [Recovered/Resolved]
  - Neutropenia [Recovered/Resolved]
  - Diarrhoea [Recovered/Resolved]

NARRATIVE: CASE EVENT DATE: 20200612
